FAERS Safety Report 13061614 (Version 1)
Quarter: 2016Q4

REPORT INFORMATION
  Report Type: Spontaneous
  Country: US (occurrence: US)
  Receive Date: 20161226
  Receipt Date: 20161226
  Transmission Date: 20170207
  Serious: No
  Sender: FDA-Public Use
  Company Number: US-NOVEN PHARMACEUTICALS, INC.-US2016000796

PATIENT

DRUGS (4)
  1. TESTOSTERONE. [Concomitant]
     Active Substance: TESTOSTERONE
     Indication: HYSTERECTOMY
  2. MINIVELLE [Suspect]
     Active Substance: ESTRADIOL
     Indication: NIGHT SWEATS
  3. MINIVELLE [Suspect]
     Active Substance: ESTRADIOL
     Indication: HOT FLUSH
     Dosage: 0.05 MG, 2/WK
     Route: 062
     Dates: start: 20151229
  4. PROGESTERONE. [Concomitant]
     Active Substance: PROGESTERONE
     Indication: HYSTERECTOMY

REACTIONS (4)
  - No adverse event [Unknown]
  - Product adhesion issue [Unknown]
  - Wrong technique in product usage process [Not Recovered/Not Resolved]
  - Drug prescribing error [Not Recovered/Not Resolved]
